FAERS Safety Report 5755799-9 (Version None)
Quarter: 2008Q2

REPORT INFORMATION
  Report Type: 
  Country: None (occurrence: None)
  Receive Date: 20080602
  Receipt Date: 20080519
  Transmission Date: 20081010
  Serious: Yes (Hospitalization)
  Sender: FDA-Public Use
  Company Number: US-BRISTOL-MYERS SQUIBB COMPANY-14196950

PATIENT
  Age: 63 Year
  Sex: Female
  Weight: 73 kg

DRUGS (11)
  1. TEQUIN [Suspect]
     Indication: PNEUMONIA
     Route: 048
  2. PERCOCET [Suspect]
  3. TRAZODONE HCL [Suspect]
  4. FAMVIR [Suspect]
     Route: 048
  5. BIAXIN [Suspect]
  6. ACCUPRIL [Suspect]
  7. LEXAPRO [Suspect]
  8. PRANDIN [Suspect]
  9. AVANDIA [Suspect]
  10. PRILOSEC [Suspect]
  11. OXYCONTIN [Suspect]

REACTIONS (2)
  - CONFUSIONAL STATE [None]
  - DIABETIC KETOACIDOSIS [None]
